FAERS Safety Report 9401617 (Version 2)
Quarter: 2013Q3

REPORT INFORMATION
  Report Type: Spontaneous
  Country: US (occurrence: US)
  Receive Date: 20130716
  Receipt Date: 20130802
  Transmission Date: 20140515
  Serious: Yes (Hospitalization)
  Sender: FDA-Public Use
  Company Number: US-BIOGENIDEC-2013BI062120

PATIENT
  Age: 44 Year
  Sex: Male

DRUGS (1)
  1. AVONEX [Suspect]
     Indication: MULTIPLE SCLEROSIS
     Route: 030
     Dates: start: 20121126

REACTIONS (6)
  - Sepsis [Recovered/Resolved]
  - Cystitis [Recovered/Resolved]
  - Decubitus ulcer [Recovered/Resolved]
  - Adverse event [Recovered/Resolved]
  - Multiple sclerosis [Recovered/Resolved]
  - Malaise [Recovered/Resolved]
